FAERS Safety Report 5745995-9 (Version None)
Quarter: 2008Q2

REPORT INFORMATION
  Report Type: 
  Country: None (occurrence: None)
  Receive Date: 20080520
  Receipt Date: 20080507
  Transmission Date: 20081010
  Serious: Yes (Hospitalization)
  Sender: FDA-Public Use
  Company Number: DSJ-2008-05607

PATIENT
  Age: 59 Year
  Sex: Female

DRUGS (4)
  1. OLMESARTAN HCT (HYDROCHLOROTHIAZIDE, OLMESARTAN MEDOXOMIL) (TABLET) (H [Suspect]
     Indication: HYPERTENSION
     Dosage: PER ORAL
     Route: 048
  2. INSULIN (INSULIN) [Concomitant]
  3. SIMVASTATIN [Concomitant]
  4. FUROSEMIDE [Concomitant]

REACTIONS (2)
  - CUTANEOUS VASCULITIS [None]
  - LEUKOCYTOCLASTIC VASCULITIS [None]
